FAERS Safety Report 8557253-8 (Version None)
Quarter: 2012Q3

REPORT INFORMATION
  Report Type: 
  Country: None (occurrence: None)
  Receive Date: 20120801
  Receipt Date: 20120727
  Transmission Date: 20120928
  Serious: Yes (Death, Other)
  Sender: FDA-Public Use
  Company Number: PHHO2007JP02271

PATIENT
  Sex: Male

DRUGS (10)
  1. ZOLEDRONOC ACID [Suspect]
     Indication: HYPERCALCAEMIA OF MALIGNANCY
     Dosage: 4 MG,  DILURTED TO 100 ML
     Route: 041
     Dates: start: 20061102, end: 20061102
  2. FAMOTIDINE [Concomitant]
     Dosage: 40 MG, UNK
     Route: 048
  3. OXYCONTIN [Concomitant]
     Dosage: 40 MG, UNK
     Route: 048
  4. LOXONIN [Concomitant]
     Dosage: 180 MG, UNK
     Route: 048
  5. FENTANYL-100 [Concomitant]
     Dosage: 5 MG, UNK
     Route: 061
  6. NEO-MINOPHAGEN C [Concomitant]
     Dosage: 20 ML, UNK
     Route: 042
  7. MOTILIUM [Concomitant]
     Dosage: 30 MG, UNK
     Route: 048
  8. CEFOTIAM HYDROCHLORIDE [Concomitant]
     Dosage: 2 G, UNK
     Route: 042
     Dates: start: 20061103, end: 20061111
  9. NAFAMOSTAT [Concomitant]
     Dosage: 100 MG, UNK
     Route: 042
  10. ELASPOL [Concomitant]
     Dosage: 300 MG, UNK
     Route: 042

REACTIONS (4)
  - NEOPLASM PROGRESSION [None]
  - BLOOD UREA INCREASED [None]
  - HYPOCALCAEMIA [None]
  - NEOPLASM MALIGNANT [None]
